FAERS Safety Report 4600198-6 (Version None)
Quarter: 2005Q1

REPORT INFORMATION
  Report Type: 
  Country: None (occurrence: None)
  Receive Date: 20050307
  Receipt Date: 20050221
  Transmission Date: 20050727
  Serious: Yes (Other)
  Sender: FDA-Public Use
  Company Number: PHEH2005US02362

PATIENT
  Age: 65 Year
  Sex: Male
  Weight: 127 kg

DRUGS (9)
  1. HYDROCHLOROTHIAZIDE [Suspect]
     Indication: HYPERTENSION
     Dosage: 25 MG, QD
     Dates: start: 19700101
  2. NORVASC [Suspect]
     Indication: HYPERTENSION
     Dosage: 5 MG, QD
     Dates: end: 20050106
  3. VERAPAMIL [Concomitant]
  4. ACEON [Concomitant]
     Dosage: 8 MG, BID
  5. CLONIDINE [Concomitant]
     Dosage: 0.2 MG, BID
  6. LABETALOL HCL [Concomitant]
     Dosage: 300 MG, BID
  7. HYTRIN [Concomitant]
     Dosage: 2 MG, BID
  8. ZYRTEC [Concomitant]
     Indication: HYPERSENSITIVITY
  9. VITAMINS NOS [Concomitant]

REACTIONS (8)
  - BLOOD PRESSURE INADEQUATELY CONTROLLED [None]
  - BLOOD PRESSURE SYSTOLIC INCREASED [None]
  - CONSTIPATION [None]
  - EXTRASYSTOLES [None]
  - FLUID RETENTION [None]
  - HEART RATE IRREGULAR [None]
  - OEDEMA PERIPHERAL [None]
  - PERICARDIAL EFFUSION [None]
